FAERS Safety Report 8494144-5 (Version None)
Quarter: 2012Q2

REPORT INFORMATION
  Report Type: 
  Country: None (occurrence: None)
  Receive Date: 20120628
  Receipt Date: 20120613
  Transmission Date: 20120825
  Serious: Yes (Life-Threatening)
  Sender: FDA-Public Use
  Company Number: 1320261

PATIENT
  Age: 68 Year
  Sex: Female
  Weight: 39.9165 kg

DRUGS (4)
  1. HUMIRA [Suspect]
     Indication: PSORIASIS
     Dosage: 40 MG MILLIGRAM(S), 2 WEEK, SUBCUTANEOUS
     Route: 058
     Dates: start: 20100310, end: 20111117
  2. CYCLOSPORINE [Suspect]
     Indication: PRODUCT USED FOR UNKNOWN INDICATION
     Dosage: 150 MG MILLIGRAM(S), 1 DAY
  3. AMLODIPINE [Concomitant]
  4. METHOTREXATE [Suspect]
     Indication: PRODUCT USED FOR UNKNOWN INDICATION
     Dosage: DOSE GOES UP OR DOWN DEPENDING ON SEVERITY

REACTIONS (5)
  - OSTEOARTHRITIS [None]
  - ABDOMINAL DISTENSION [None]
  - OVARIAN EPITHELIAL CANCER [None]
  - WEIGHT DECREASED [None]
  - CHANGE OF BOWEL HABIT [None]
